FAERS Safety Report 4485596-6 (Version None)
Quarter: 2004Q4

REPORT INFORMATION
  Report Type: 
  Country: None (occurrence: None)
  Receive Date: 20041026
  Receipt Date: 20041020
  Transmission Date: 20050328
  Serious: Yes (Death, Other)
  Sender: FDA-Public Use
  Company Number: CA-MERCK-0410USA03342

PATIENT
  Age: 18 Year
  Sex: Male

DRUGS (4)
  1. ELSPAR [Suspect]
     Route: 065
     Dates: start: 19970101
  2. VINCRISTINE SULFATE [Concomitant]
     Route: 065
     Dates: start: 19970101
  3. DAUNORUBICIN [Concomitant]
     Route: 065
     Dates: start: 19970101
  4. PREDNISONE [Concomitant]
     Route: 065
     Dates: start: 19970101

REACTIONS (4)
  - BONE MARROW TRANSPLANT REJECTION [None]
  - GRAFT VERSUS HOST DISEASE [None]
  - PANCREATITIS [None]
  - THROMBOTIC MICROANGIOPATHY [None]
